FAERS Safety Report 9291190 (Version 1)
Quarter: 2013Q2

REPORT INFORMATION
  Report Type: Spontaneous
  Country: JP (occurrence: JP)
  Receive Date: 20130515
  Receipt Date: 20130515
  Transmission Date: 20140414
  Serious: Yes (Hospitalization)
  Sender: FDA-Public Use
  Company Number: PHHY2013JP047635

PATIENT
  Age: 51 Year
  Sex: Male

DRUGS (2)
  1. PAROXETINE [Suspect]
     Indication: DEPRESSION
     Dosage: 20 MG, PER DAY
  2. PAROXETINE [Suspect]
     Dosage: 10 MG, UNK

REACTIONS (5)
  - Idiopathic thrombocytopenic purpura [Recovering/Resolving]
  - Petechiae [Unknown]
  - Purpura [Unknown]
  - Respiratory failure [Unknown]
  - Pulmonary alveolar haemorrhage [Unknown]
